FAERS Safety Report 5378671-5 (Version None)
Quarter: 2007Q3

REPORT INFORMATION
  Report Type: 
  Country: None (occurrence: None)
  Receive Date: 20070702
  Receipt Date: 20070702
  Transmission Date: 20080115
  Serious: Yes (Other)
  Sender: FDA-Public Use
  Company Number: None

PATIENT
  Age: 36 Year
  Sex: Male
  Weight: 79.3795 kg

DRUGS (1)
  1. SEROQUEL [Suspect]
     Indication: BIPOLAR I DISORDER
     Dosage: 2 TABS AT BEDTIME PO
     Route: 048
     Dates: start: 20010101, end: 20070401

REACTIONS (13)
  - AGGRESSION [None]
  - BLOOD GLUCOSE INCREASED [None]
  - DRUG HYPERSENSITIVITY [None]
  - FEELING ABNORMAL [None]
  - HANGOVER [None]
  - HEADACHE [None]
  - HOSTILITY [None]
  - HYPERSOMNIA [None]
  - IRRITABILITY [None]
  - MENTAL STATUS CHANGES [None]
  - PARADOXICAL DRUG REACTION [None]
  - PERSONALITY CHANGE [None]
  - REACTION TO DRUG EXCIPIENTS [None]
